FAERS Safety Report 7375378-X (Version None)
Quarter: 2011Q1

REPORT INFORMATION
  Report Type: 
  Country: None (occurrence: None)
  Receive Date: 20110325
  Receipt Date: 20110223
  Transmission Date: 20110831
  Serious: Yes (Life-Threatening)
  Sender: FDA-Public Use
  Company Number: GB-GENZYME-CLOF-1001460

PATIENT
  Sex: Female

DRUGS (34)
  1. METOCLOPRAMIDE [Concomitant]
     Dosage: 1.6 MG, TID
     Route: 042
     Dates: start: 20110223
  2. MEROPENEM [Concomitant]
     Dosage: 250 MG, TID
     Route: 042
     Dates: start: 20110225
  3. RED BLOOD CELLS [Concomitant]
     Dosage: 150 ML, ONCE
     Route: 042
     Dates: start: 20110221, end: 20110221
  4. AMBISOME [Concomitant]
     Indication: ANTIFUNGAL PROPHYLAXIS
     Dosage: UNK
     Route: 042
     Dates: start: 20110217
  5. ALLOPURINOL [Concomitant]
     Indication: PROPHYLAXIS
     Dosage: 50 MG, TID
     Route: 048
     Dates: start: 20110209
  6. TAZOCIN [Concomitant]
     Dosage: 900 MG, TID
     Route: 042
     Dates: start: 20110222, end: 20110225
  7. VANCOMYCIN [Concomitant]
     Indication: ANTIBIOTIC THERAPY
     Dosage: 150 MG, TID
     Route: 042
     Dates: start: 20110210
  8. METOCLOPRAMIDE [Concomitant]
     Indication: ANTIEMETIC SUPPORTIVE CARE
     Dosage: 1.6 MG, TID
     Route: 042
     Dates: start: 20110210
  9. MEROPENEM [Concomitant]
     Indication: ANTIBIOTIC THERAPY
     Dosage: 200 MG, TID
     Route: 042
     Dates: start: 20110211, end: 20110222
  10. PARACETAMOL [Concomitant]
     Dosage: 75 MG, Q4HR
     Route: 042
     Dates: start: 20110214, end: 20110215
  11. TPN ELECTROLYTES IN PLASTIC CONTAINER [Concomitant]
     Indication: NUTRITIONAL SUPPORT
     Dosage: 1 NA, ONCE
     Route: 042
     Dates: start: 20110223
  12. FLUCONAZOLE [Concomitant]
     Indication: ANTIFUNGAL TREATMENT
     Dosage: 300 MG, ONCE
     Route: 042
     Dates: start: 20110224
  13. GENTAMYCIN-MP [Concomitant]
     Dosage: 50 MG, ONCE
     Route: 042
     Dates: start: 20110222, end: 20110224
  14. PARACETAMOL [Concomitant]
     Indication: ANALGESIC THERAPY
     Dosage: 100 MG, PRN
     Route: 042
     Dates: start: 20110209
  15. ORAMORPH SR [Concomitant]
     Indication: ANALGESIC THERAPY
     Dosage: 2 MG, PRN
     Route: 048
     Dates: start: 20110213
  16. PLATELETS [Concomitant]
     Dosage: 150 ML, ONCE
     Route: 042
     Dates: start: 20110221, end: 20110221
  17. VANCOMYCIN [Concomitant]
     Dosage: 150 MG, TID
     Route: 042
     Dates: start: 20110225
  18. DF118 [Concomitant]
     Indication: ANALGESIC THERAPY
     Dosage: 5 MG, NA
     Route: 042
     Dates: start: 20110214
  19. PLATELETS [Concomitant]
     Dosage: 150 ML, ONCE
     Route: 042
     Dates: start: 20110214, end: 20110214
  20. EVOLTRA [Suspect]
     Indication: ACUTE MYELOID LEUKAEMIA
     Dosage: 40 MG, QDX5
     Route: 042
     Dates: start: 20110210, end: 20110214
  21. GENTAMYCIN-MP [Concomitant]
     Indication: ANTIBIOTIC THERAPY
     Dosage: 50 MG, QD
     Route: 042
     Dates: start: 20110209, end: 20110210
  22. PARACETAMOL [Concomitant]
     Dosage: 100 MG, QS
     Route: 042
     Dates: start: 20110215
  23. PLATELETS [Concomitant]
     Dosage: 150 ML, ONCE
     Route: 042
     Dates: start: 20110221, end: 20110221
  24. RED BLOOD CELLS [Concomitant]
     Indication: HAEMOGLOBIN DECREASED
     Dosage: 150 ML, ONCE
     Route: 042
     Dates: start: 20110211, end: 20110211
  25. CHLORPHENAMINE [Concomitant]
     Indication: PRODUCT USED FOR UNKNOWN INDICATION
     Dosage: 2.5 MG, QS
     Route: 042
     Dates: start: 20110210
  26. PLATELETS [Concomitant]
     Indication: PLATELET COUNT DECREASED
     Dosage: 150 ML, ONCE
     Route: 042
     Dates: start: 20110208, end: 20110208
  27. DAUNOXOME [Suspect]
     Indication: ACUTE MYELOID LEUKAEMIA
     Dosage: 60 MG, QOD (DAY 1, 3 + 5)
     Route: 042
     Dates: start: 20110210, end: 20110214
  28. CLOTRIMAZOLE [Concomitant]
     Indication: SKIN IRRITATION
     Dosage: 1 OTHER, TID
     Route: 061
     Dates: start: 20110213
  29. RED BLOOD CELLS [Concomitant]
     Dosage: 150 ML, ONCE
     Route: 042
     Dates: start: 20110221, end: 20110221
  30. TAZOCIN [Concomitant]
     Indication: ANTIBIOTIC THERAPY
     Dosage: 900 MG, TID
     Route: 042
     Dates: start: 20110209, end: 20110211
  31. ONDANSETRON [Concomitant]
     Indication: ANTIEMETIC SUPPORTIVE CARE
     Dosage: 1.5 MG, TID
     Route: 042
     Dates: start: 20110210, end: 20110218
  32. COTRIM [Concomitant]
     Indication: PROPHYLAXIS
     Dosage: 240 MG, BID
     Route: 048
     Dates: start: 20110212
  33. DEXAMETHASONE [Concomitant]
     Indication: ANTIEMETIC SUPPORTIVE CARE
     Dosage: 1 MG, BID
     Route: 042
     Dates: start: 20110211, end: 20110215
  34. PETHIDINE [Concomitant]
     Indication: ANALGESIC THERAPY
     Dosage: 20 MG, NA
     Route: 042
     Dates: start: 20110211

REACTIONS (4)
  - RESPIRATORY ARREST [None]
  - PYREXIA [None]
  - HYDROCEPHALUS [None]
  - CHLOROMA [None]
